FAERS Safety Report 14238979 (Version 1)
Quarter: 2017Q4

REPORT INFORMATION
  Report Type: Spontaneous
  Country: US (occurrence: US)
  Receive Date: 20171130
  Receipt Date: 20171130
  Transmission Date: 20180321
  Serious: No
  Sender: FDA-Public Use
  Company Number: US-SA-2017SA223723

PATIENT
  Age: 45 Year
  Sex: Female

DRUGS (4)
  1. SOLIQUA 100/33 [Suspect]
     Active Substance: INSULIN GLARGINE\LIXISENATIDE
     Route: 058
     Dates: start: 201705
  2. TOUJEO [Concomitant]
     Active Substance: INSULIN GLARGINE
     Dosage: DOSE:35 UNIT(S)
     Route: 065
     Dates: end: 201705
  3. SOLOSTAR [Suspect]
     Active Substance: DEVICE
     Dates: start: 201705
  4. SOLOSTAR [Concomitant]
     Active Substance: DEVICE
     Route: 065
     Dates: end: 201705

REACTIONS (4)
  - Vomiting [Unknown]
  - Malaise [Unknown]
  - Decreased appetite [Unknown]
  - Nausea [Unknown]

NARRATIVE: CASE EVENT DATE: 2017
